FAERS Safety Report 5321761-3 (Version None)
Quarter: 2007Q2

REPORT INFORMATION
  Report Type: 
  Country: None (occurrence: None)
  Receive Date: 20070510
  Receipt Date: 20070501
  Transmission Date: 20071010
  Serious: Yes (Death)
  Sender: FDA-Public Use
  Company Number: US-PFIZER INC-2007012920

PATIENT
  Sex: Female
  Weight: 81 kg

DRUGS (13)
  1. SUTENT [Suspect]
     Indication: RETROPERITONEAL CANCER
     Route: 048
     Dates: start: 20070104, end: 20070119
  2. CAPECITABINE [Suspect]
     Indication: RETROPERITONEAL CANCER
     Route: 048
     Dates: start: 20070104, end: 20070118
  3. COZAAR [Concomitant]
     Route: 048
  4. ZOLOFT [Concomitant]
     Route: 048
     Dates: start: 20060901
  5. RESTORIL [Concomitant]
     Route: 048
     Dates: start: 20061101
  6. ASCORBIC ACID [Concomitant]
     Route: 048
     Dates: start: 20050101
  7. IRON SULFATETHIAMIN COMPOUND TAB [Concomitant]
     Route: 048
     Dates: start: 20061001
  8. LEVOTHYROXINE SODIUM [Concomitant]
     Route: 048
     Dates: start: 20060101
  9. COLACE [Concomitant]
     Route: 048
     Dates: start: 20061101
  10. INNOHEP [Concomitant]
     Route: 058
     Dates: start: 20061212
  11. ZOFRAN [Concomitant]
     Route: 048
     Dates: start: 20070105
  12. DURAGESIC-100 [Concomitant]
     Route: 061
     Dates: start: 20070202
  13. VICODIN [Concomitant]
     Route: 048
     Dates: start: 20060901, end: 20070202

REACTIONS (2)
  - DISEASE PROGRESSION [None]
  - RETROPERITONEAL CANCER [None]
